FAERS Safety Report 17741591 (Version 1)
Quarter: 2020Q2

REPORT INFORMATION
  Report Type: Spontaneous
  Country: CN (occurrence: CN)
  Receive Date: 20200504
  Receipt Date: 20200504
  Transmission Date: 20200714
  Serious: Yes (Hospitalization, Other)
  Sender: FDA-Public Use
  Company Number: CN-SA-2020SA108965

PATIENT
  Age: 30 Year
  Sex: Female

DRUGS (4)
  1. METHYLCOBALAMIN. [Concomitant]
     Active Substance: METHYLCOBALAMIN
     Dosage: 0.5 MG, TID
     Route: 048
     Dates: start: 20200316
  2. POLYENE PHOSPHATIDYLCHOLINE [Concomitant]
     Active Substance: PHOSPHOLIPID
     Dosage: 456 MG, TID
     Route: 048
     Dates: start: 20200316
  3. BUSPIRONE HYDROCHLORIDE. [Concomitant]
     Active Substance: BUSPIRONE HYDROCHLORIDE
     Dosage: 5 MG, TID
     Route: 048
     Dates: start: 20200316
  4. AUBAGIO [Suspect]
     Active Substance: TERIFLUNOMIDE
     Indication: MULTIPLE SCLEROSIS
     Dosage: 14 MG, QD
     Route: 048
     Dates: start: 20190413

REACTIONS (6)
  - Muscular weakness [Recovered/Resolved]
  - Hyperreflexia [Not Recovered/Not Resolved]
  - Liver function test abnormal [Recovered/Resolved]
  - Gait disturbance [Recovering/Resolving]
  - Central nervous system lesion [Unknown]
  - Multiple sclerosis [Recovered/Resolved]

NARRATIVE: CASE EVENT DATE: 20200305
